FAERS Safety Report 9796416 (Version 1)
Quarter: 2014Q1

REPORT INFORMATION
  Report Type: Spontaneous
  Country: FR (occurrence: FR)
  Receive Date: 20140103
  Receipt Date: 20140103
  Transmission Date: 20141002
  Serious: Yes (Other)
  Sender: FDA-Public Use
  Company Number: FR-PFIZER INC-2013373503

PATIENT
  Age: 51 Year
  Sex: Male

DRUGS (1)
  1. INSPRA [Suspect]
     Indication: EJECTION FRACTION DECREASED
     Dosage: 50 MG, 1X/DAY
     Route: 048
     Dates: start: 20120106, end: 20130517

REACTIONS (2)
  - Asthenia [Recovered/Resolved]
  - Dyspnoea [Recovered/Resolved]
